FAERS Safety Report 11964301 (Version 1)
Quarter: 2016Q1

REPORT INFORMATION
  Report Type: Spontaneous
  Country: US (occurrence: None)
  Receive Date: 20160121
  Receipt Date: 20160121
  Transmission Date: 20160526
  Serious: No
  Sender: FDA-Public Use
  Company Number: None

PATIENT
  Age: 25 Year
  Sex: Female
  Weight: 61.24 kg

DRUGS (5)
  1. VITAMIN C [Concomitant]
     Active Substance: ASCORBIC ACID
  2. IRON [Concomitant]
     Active Substance: IRON
  3. BIOTIN [Concomitant]
     Active Substance: BIOTIN
  4. NATALIZUMAB BIOGEM-IDEC [Suspect]
     Active Substance: NATALIZUMAB
     Indication: MULTIPLE SCLEROSIS
     Dosage: 0NCE MONTHLY INFUSION, EVERY 28 DAYS
     Route: 042
     Dates: start: 20150905
  5. VITAMIN D [Concomitant]
     Active Substance: CHOLECALCIFEROL

REACTIONS (3)
  - Paraesthesia [None]
  - Hyperaesthesia [None]
  - Alopecia [None]

NARRATIVE: CASE EVENT DATE: 20150909
